FAERS Safety Report 5263588-7 (Version None)
Quarter: 2007Q1

REPORT INFORMATION
  Report Type: 
  Country: None (occurrence: None)
  Receive Date: 20070313
  Receipt Date: 20070306
  Transmission Date: 20070707
  Serious: No
  Sender: FDA-Public Use
  Company Number: JP-BRISTOL-MYERS SQUIBB COMPANY-13699160

PATIENT
  Age: 45 Year
  Sex: Female

DRUGS (5)
  1. TAXOL [Suspect]
     Indication: BREAST CANCER
     Route: 041
  2. DEXAMETHASONE SODIUM PHOSPHATE [Concomitant]
     Route: 042
  3. RANITIDINE HCL [Concomitant]
     Route: 042
  4. GRANISETRON [Concomitant]
     Route: 042
  5. DIPHENHYDRAMINE HCL [Concomitant]
     Route: 048
     Dates: start: 20061114, end: 20061212

REACTIONS (1)
  - PHOTOSENSITIVITY REACTION [None]
